FAERS Safety Report 6785225-2 (Version None)
Quarter: 2010Q2

REPORT INFORMATION
  Report Type: 
  Country: None (occurrence: None)
  Receive Date: 20100622
  Receipt Date: 20100622
  Transmission Date: 20101027
  Serious: Yes (Hospitalization)
  Sender: FDA-Public Use
  Company Number: None

PATIENT
  Age: 50 Year
  Sex: Male
  Weight: 134.2647 kg

DRUGS (13)
  1. ATORVASTATIN CALCIUM [Suspect]
     Indication: HYPERLIPIDAEMIA
     Dosage: 20 MG DAILY AM PO
     Route: 048
     Dates: start: 20071015, end: 20100429
  2. ASPIRIN [Concomitant]
  3. CARVEDILOL [Concomitant]
  4. CHLOPROMAZINE [Concomitant]
  5. DIVALPROEX SODIUM [Concomitant]
  6. ENALAPRIL MALEATE [Concomitant]
  7. FERROUS SULFATE TAB [Concomitant]
  8. FUROSEMIDE [Concomitant]
  9. GABAPENTIN [Concomitant]
  10. LANSOPRAZOLE [Concomitant]
  11. LEVOTHYROXINE [Concomitant]
  12. METFORMIN HCL [Concomitant]
  13. NALTREXONE HYDROCHLORIDE [Concomitant]

REACTIONS (6)
  - ACUTE PRERENAL FAILURE [None]
  - CONVULSION [None]
  - HYPERHIDROSIS [None]
  - HYPOTENSION [None]
  - HYPOXIA [None]
  - RHABDOMYOLYSIS [None]
